FAERS Safety Report 14737808 (Version 2)
Quarter: 2018Q2

REPORT INFORMATION
  Report Type: Spontaneous
  Country: DE (occurrence: DE)
  Receive Date: 20180409
  Receipt Date: 20180501
  Transmission Date: 20180711
  Serious: Yes (Hospitalization)
  Sender: FDA-Public Use
  Company Number: PHHY2018DE056974

PATIENT
  Age: 56 Year
  Sex: Female

DRUGS (3)
  1. GEMCITABINE [Suspect]
     Active Substance: GEMCITABINE\GEMCITABINE HYDROCHLORIDE
     Indication: METASTASES TO LIVER
     Dosage: 1000 MG/M2, ON DAY 1 AND DAY 8
     Route: 065
     Dates: start: 201108, end: 201202
  2. CARBOPLATIN. [Suspect]
     Active Substance: CARBOPLATIN
     Indication: METASTASES TO LIVER
     Dosage: AREA UNDER THE CURVE OF 4
     Route: 065
  3. BEVACIZUMAB. [Suspect]
     Active Substance: BEVACIZUMAB
     Indication: METASTASES TO LIVER
     Dosage: 15 MG/KG, ON DAY 1
     Route: 065

REACTIONS (1)
  - Gastropleural fistula [Recovered/Resolved]

NARRATIVE: CASE EVENT DATE: 2011
